FAERS Safety Report 8453974-6 (Version None)
Quarter: 2012Q2

REPORT INFORMATION
  Report Type: 
  Country: None (occurrence: None)
  Receive Date: 20120620
  Receipt Date: 20120612
  Transmission Date: 20120825
  Serious: Yes (Other)
  Sender: FDA-Public Use
  Company Number: US-US-EMD SERONO, INC.-7139912

PATIENT
  Sex: Female
  Weight: 77 kg

DRUGS (6)
  1. SINGULAIR [Concomitant]
     Indication: MULTIPLE ALLERGIES
  2. ALLEGRA [Concomitant]
     Indication: MULTIPLE ALLERGIES
  3. REBIF [Suspect]
     Indication: MULTIPLE SCLEROSIS
     Route: 058
     Dates: start: 20070517
  4. EFFEXOR [Concomitant]
     Indication: DEPRESSION
  5. MULTI-VITAMINS [Concomitant]
     Indication: PRODUCT USED FOR UNKNOWN INDICATION
  6. DETROL [Concomitant]
     Indication: HYPERTONIC BLADDER

REACTIONS (2)
  - HEADACHE [None]
  - BREAST CANCER STAGE I [None]
